FAERS Safety Report 19273595 (Version 1)
Quarter: 2021Q2

REPORT INFORMATION
  Report Type: Spontaneous
  Country: US (occurrence: US)
  Receive Date: 20210519
  Receipt Date: 20210519
  Transmission Date: 20210717
  Serious: No
  Sender: FDA-Public Use
  Company Number: US-CELLTRION INC.-2021US006017

PATIENT

DRUGS (3)
  1. TRUXIMA [Suspect]
     Active Substance: RITUXIMAB-ABBS
     Dosage: 675 MG, MONTHLY
     Dates: start: 20210428
  2. TRUXIMA [Suspect]
     Active Substance: RITUXIMAB-ABBS
     Dosage: 800 MG, MONTHLY
     Dates: start: 20210203
  3. TRUXIMA [Suspect]
     Active Substance: RITUXIMAB-ABBS
     Indication: EXTRANODAL MARGINAL ZONE B-CELL LYMPHOMA (MALT TYPE)
     Dosage: 600 MG, MONTHLY
     Dates: start: 20210107

REACTIONS (1)
  - Off label use [Unknown]
